FAERS Safety Report 23618334 (Version 4)
Quarter: 2024Q2

REPORT INFORMATION
  Report Type: Report from Study
  Country: US (occurrence: US)
  Receive Date: 20240311
  Receipt Date: 20240517
  Transmission Date: 20240716
  Serious: Yes (Hospitalization, Other)
  Sender: FDA-Public Use
  Company Number: US-TAKEDA-2024TUS021064

PATIENT
  Sex: Male
  Weight: 106 kg

DRUGS (3)
  1. FRUQUINTINIB [Suspect]
     Active Substance: FRUQUINTINIB
     Indication: Colon cancer
     Dosage: 5 MILLIGRAM
     Route: 048
     Dates: start: 20240220
  2. FRUQUINTINIB [Suspect]
     Active Substance: FRUQUINTINIB
     Dosage: 5 MILLIGRAM
     Route: 048
  3. FRUQUINTINIB [Suspect]
     Active Substance: FRUQUINTINIB
     Dosage: UNK
     Route: 048

REACTIONS (8)
  - General physical health deterioration [Recovering/Resolving]
  - Liver disorder [Unknown]
  - Ascites [Unknown]
  - Cataract [Recovered/Resolved]
  - Carcinoembryonic antigen increased [Unknown]
  - Liver function test increased [Unknown]
  - Blood bilirubin increased [Unknown]
  - Fatigue [Recovering/Resolving]
